FAERS Safety Report 6507075-4 (Version None)
Quarter: 2009Q4

REPORT INFORMATION
  Report Type: 
  Country: None (occurrence: None)
  Receive Date: 20091221
  Receipt Date: 20091208
  Transmission Date: 20100525
  Serious: No
  Sender: FDA-Public Use
  Company Number: PHHY2009JP16494

PATIENT
  Sex: Male

DRUGS (7)
  1. AMN107 AMN+CAP [Suspect]
     Indication: CHRONIC MYELOID LEUKAEMIA
     Dosage: 800 MG/DAY
     Route: 048
     Dates: start: 20090415
  2. GASTER [Concomitant]
     Dosage: 40 MG, UNK
     Route: 048
     Dates: start: 20090410
  3. DEPAS [Concomitant]
     Dosage: 0.5 MG, UNK
     Route: 048
     Dates: start: 20090410
  4. SENNOSIDE [Concomitant]
     Dosage: 12 MG, UNK
     Route: 048
     Dates: start: 20090403
  5. ALLELOCK [Concomitant]
     Indication: CHRONIC MYELOID LEUKAEMIA
     Dosage: 5 MG, UNK
     Route: 048
     Dates: start: 20090423
  6. MAGMITT KENEI [Concomitant]
     Dosage: 750 UG, UNK
     Route: 048
     Dates: start: 20090421
  7. URSO 250 [Concomitant]
     Indication: CHRONIC MYELOID LEUKAEMIA
     Dosage: 600 MG, UNK
     Route: 048
     Dates: start: 20090420, end: 20090601

REACTIONS (6)
  - ANAEMIA [None]
  - ELECTROCARDIOGRAM QT PROLONGED [None]
  - HYPERBILIRUBINAEMIA [None]
  - MALAISE [None]
  - PYREXIA [None]
  - RASH [None]
